FAERS Safety Report 18746318 (Version 1)
Quarter: 2021Q1

REPORT INFORMATION
  Report Type: Spontaneous
  Country: ES (occurrence: ES)
  Receive Date: 20210115
  Receipt Date: 20210115
  Transmission Date: 20210419
  Serious: Yes (Hospitalization)
  Sender: FDA-Public Use
  Company Number: ES-TEVA-2021-ES-1869794

PATIENT
  Age: 82 Year
  Sex: Male
  Weight: 72 kg

DRUGS (4)
  1. LEVOFLOXACINO [Interacting]
     Active Substance: LEVOFLOXACIN
     Indication: COVID-19
     Dosage: 750 MG A DAY ON THE 18 AND 500 MG A DAY FROM THE 19, UNIT DOSE: 750 MG
     Route: 042
     Dates: start: 20200318, end: 20200320
  2. TOCILIZUMAB. [Interacting]
     Active Substance: TOCILIZUMAB
     Indication: COVID-19
     Dosage: 560 MG
     Route: 042
     Dates: start: 20200318, end: 20200319
  3. HIDROXICLOROQUINA [Suspect]
     Active Substance: HYDROXYCHLOROQUINE
     Indication: COVID-19
     Dosage: 400 MG FIRST DAY, THEN 200 MG, UNIT DOSE: 400 MG
     Route: 048
     Dates: start: 20200318, end: 20200325
  4. KALETRA [Interacting]
     Active Substance: LOPINAVIR\RITONAVIR
     Indication: COVID-19
     Dosage: 400 MG
     Route: 048
     Dates: start: 20200318, end: 20200325

REACTIONS (2)
  - Long QT syndrome [Recovered/Resolved]
  - Drug interaction [Unknown]

NARRATIVE: CASE EVENT DATE: 20200318
